FAERS Safety Report 18271707 (Version 1)
Quarter: 2020Q3

REPORT INFORMATION
  Report Type: Spontaneous
  Country: US (occurrence: US)
  Receive Date: 20200915
  Receipt Date: 20200915
  Transmission Date: 20201103
  Serious: Yes (Death)
  Sender: FDA-Public Use
  Company Number: None

PATIENT
  Age: 86 Year
  Sex: Male
  Weight: 134 kg

DRUGS (1)
  1. REMDESIVIR. [Suspect]
     Active Substance: REMDESIVIR
     Dates: start: 20200829, end: 20200902

REACTIONS (10)
  - Aspartate aminotransferase increased [None]
  - Liver function test increased [None]
  - Tachycardia [None]
  - Pyrexia [None]
  - Hypoxia [None]
  - Blood pressure systolic decreased [None]
  - Alanine aminotransferase increased [None]
  - SARS-CoV-2 test positive [None]
  - Cardiac arrest [None]
  - Serum ferritin increased [None]

NARRATIVE: CASE EVENT DATE: 20200912
